FAERS Safety Report 17230194 (Version 1)
Quarter: 2020Q1

REPORT INFORMATION
  Report Type: Spontaneous
  Country: BE (occurrence: BE)
  Receive Date: 20200103
  Receipt Date: 20200103
  Transmission Date: 20200409
  Serious: Yes (Hospitalization)
  Sender: FDA-Public Use
  Company Number: BE-TEVA-2019-BE-1160876

PATIENT
  Age: 64 Year
  Sex: Male
  Weight: 86 kg

DRUGS (11)
  1. DEXAMETHASONE 40 MG TABLETS [Concomitant]
     Dates: start: 20191104, end: 20191108
  2. NEBIVOLOL 5 MG [Concomitant]
     Active Substance: NEBIVOLOL
     Dosage: 5 MG
     Route: 048
  3. TRIPLIXAM 10 MG / 2,5 MG / 10 MG [Concomitant]
     Dosage: 1 DOSAGE FORM
     Route: 048
  4. CISPLATIN. [Suspect]
     Active Substance: CISPLATIN
     Indication: HODGKIN^S DISEASE
     Dosage: 202.5 MG
     Route: 042
     Dates: start: 20191104
  5. FLUCONAZOLE 200 MG [Concomitant]
     Active Substance: FLUCONAZOLE
     Route: 048
  6. METFORMAX 850 MG [Suspect]
     Active Substance: METFORMIN HYDROCHLORIDE
     Dosage: 2550 MG
     Route: 048
  7. ALLOPURINOL 300 MG [Concomitant]
     Active Substance: ALLOPURINOL
     Dosage: 300 MG
  8. CO-TRIMOXAZOLE 960 MG [Concomitant]
     Dosage: 960 MG
     Route: 048
  9. CYTARABINE. [Concomitant]
     Active Substance: CYTARABINE
     Dosage: 4050 MG
     Dates: start: 20191104
  10. NOVOMIX 30 [Concomitant]
     Active Substance: INSULIN ASPART
     Dosage: 14-8-20 IE. 3 IU
  11. ATORVASTATINE 40 MG [Concomitant]
     Active Substance: ATORVASTATIN

REACTIONS (4)
  - Acute kidney injury [Recovering/Resolving]
  - Dialysis device insertion [Recovering/Resolving]
  - Glomerular filtration rate decreased [Recovering/Resolving]
  - Lactic acidosis [Recovering/Resolving]

NARRATIVE: CASE EVENT DATE: 20191114
